FAERS Safety Report 24932332 (Version 1)
Quarter: 2025Q1

REPORT INFORMATION
  Report Type: Report from Study
  Country: US (occurrence: US)
  Receive Date: 20250205
  Receipt Date: 20250205
  Transmission Date: 20250408
  Serious: No
  Sender: EXELIXIS
  Company Number: US-EXELIXIS-CABO-24080339

PATIENT
  Sex: Male

DRUGS (8)
  1. CABOMETYX [Suspect]
     Active Substance: CABOZANTINIB S-MALATE
     Indication: Renal cancer
     Dosage: 40 MG, QD
     Route: 048
  2. MAGNESIUM OXIDE [Concomitant]
     Active Substance: MAGNESIUM OXIDE
  3. IRON [Concomitant]
     Active Substance: IRON
  4. XARELTO [Concomitant]
     Active Substance: RIVAROXABAN
  5. FINASTERIDE [Concomitant]
     Active Substance: FINASTERIDE
  6. FLUVIRIN NOS [Concomitant]
     Active Substance: INFLUENZA VIRUS VACCINE
  7. LISINOPRIL [Concomitant]
     Active Substance: LISINOPRIL
  8. TAMSULOSIN [Concomitant]
     Active Substance: TAMSULOSIN

REACTIONS (3)
  - Faeces soft [Recovered/Resolved]
  - Hair colour changes [Unknown]
  - Fatigue [Recovering/Resolving]
